FAERS Safety Report 9603715 (Version 2)
Quarter: 2013Q4

REPORT INFORMATION
  Report Type: Report from Study
  Country: CA (occurrence: CA)
  Receive Date: 20131007
  Receipt Date: 20131101
  Transmission Date: 20140711
  Serious: Yes (Other)
  Sender: FDA-Public Use
  Company Number: CA-ROCHE-1284783

PATIENT
  Sex: Male
  Weight: 86.2 kg

DRUGS (13)
  1. RITUXAN [Suspect]
     Indication: RHEUMATOID ARTHRITIS
     Route: 042
     Dates: start: 201111
  2. RITUXAN [Suspect]
     Route: 042
     Dates: start: 20120910
  3. RITUXAN [Suspect]
     Route: 042
     Dates: start: 20120924
  4. RITUXAN [Suspect]
     Route: 042
     Dates: start: 20130308
  5. RITUXAN [Suspect]
     Route: 042
     Dates: start: 20131017
  6. DIPHENHYDRAMINE HCL [Concomitant]
     Route: 048
     Dates: start: 20130308
  7. ACETAMINOPHEN [Concomitant]
     Route: 048
     Dates: start: 20130308
  8. ACTONEL [Concomitant]
  9. PREVACID [Concomitant]
  10. BISOPROLOL [Concomitant]
  11. ADVIL [Concomitant]
  12. METHYLPREDNISOLONE [Concomitant]
     Route: 042
     Dates: start: 20130308
  13. PREDNISOLONE [Concomitant]

REACTIONS (4)
  - Diabetes mellitus [Not Recovered/Not Resolved]
  - Fatigue [Not Recovered/Not Resolved]
  - Arthralgia [Not Recovered/Not Resolved]
  - Joint swelling [Not Recovered/Not Resolved]
